FAERS Safety Report 18003896 (Version 2)
Quarter: 2021Q3

REPORT INFORMATION
  Report Type: Spontaneous
  Country: US (occurrence: US)
  Receive Date: 20200709
  Receipt Date: 20210709
  Transmission Date: 20211014
  Serious: No
  Sender: FDA-Public Use
  Company Number: US-ASTELLAS-2019US043549

PATIENT
  Sex: Female

DRUGS (1)
  1. MYRBETRIQ [Suspect]
     Active Substance: MIRABEGRON
     Indication: PRODUCT USED FOR UNKNOWN INDICATION
     Route: 065
     Dates: end: 20191031

REACTIONS (7)
  - Cognitive disorder [Unknown]
  - Visual impairment [Unknown]
  - Urinary tract infection [Unknown]
  - Hypoacusis [Unknown]
  - Headache [Unknown]
  - Dizziness [Unknown]
  - Blood pressure increased [Unknown]
